FAERS Safety Report 19688515 (Version 2)
Quarter: 2021Q4

REPORT INFORMATION
  Report Type: Spontaneous
  Country: US (occurrence: US)
  Receive Date: 20210811
  Receipt Date: 20211001
  Transmission Date: 20220303
  Serious: No
  Sender: FDA-Public Use
  Company Number: US-SA-SAC20210804000132

PATIENT
  Age: 23 Year
  Sex: Female

DRUGS (3)
  1. DUPIXENT [Suspect]
     Active Substance: DUPILUMAB
     Indication: Dermatitis atopic
     Dosage: 300 MG, QOW
     Route: 058
     Dates: start: 20210406
  2. DUPIXENT [Suspect]
     Active Substance: DUPILUMAB
     Dosage: 300 MG, QOW
     Route: 058
     Dates: start: 202105
  3. DUPIXENT [Suspect]
     Active Substance: DUPILUMAB
     Dosage: 300 MG, Q3W
     Route: 058
     Dates: start: 2021

REACTIONS (7)
  - Lacrimation increased [Unknown]
  - Periorbital swelling [Unknown]
  - Erythema [Unknown]
  - Ocular hyperaemia [Unknown]
  - Eye swelling [Unknown]
  - Dry eye [Unknown]
  - Off label use [Unknown]

NARRATIVE: CASE EVENT DATE: 20210101
